FAERS Safety Report 6770580-X (Version None)
Quarter: 2010Q2

REPORT INFORMATION
  Report Type: 
  Country: None (occurrence: None)
  Receive Date: 20100615
  Receipt Date: 20100608
  Transmission Date: 20101027
  Serious: Yes (Hospitalization, Disabling, Other)
  Sender: FDA-Public Use
  Company Number: PHHO2009GB14078

PATIENT
  Sex: Female

DRUGS (11)
  1. AFINITOR [Suspect]
     Indication: ACUTE MYELOID LEUKAEMIA
     Dosage: UNK
     Dates: start: 20090928, end: 20091102
  2. DAUNORUBICIN HCL [Suspect]
     Indication: ACUTE MYELOID LEUKAEMIA
     Dosage: UNK
     Dates: start: 20090928, end: 20091005
  3. ARA-C [Suspect]
     Indication: ACUTE MYELOID LEUKAEMIA
     Dosage: UNK
     Dates: start: 20090928, end: 20091005
  4. ETOPOSIDE [Suspect]
     Indication: ACUTE MYELOID LEUKAEMIA
     Dosage: UNK
     Dates: start: 20090928, end: 20091005
  5. POSACONAZOLE [Suspect]
  6. CYCLIZINE [Concomitant]
  7. OMEPRAZOLE [Concomitant]
  8. RALOXIFENE HCL [Concomitant]
  9. ORAMORPH SR [Concomitant]
  10. LEVOTHYROXINE SODIUM [Concomitant]
  11. NULYTELY [Concomitant]

REACTIONS (6)
  - ALANINE AMINOTRANSFERASE ABNORMAL [None]
  - ASPARTATE AMINOTRANSFERASE ABNORMAL [None]
  - COLOSTOMY [None]
  - FEMALE GENITAL TRACT FISTULA [None]
  - RECTAL ABSCESS [None]
  - VAGINAL DISCHARGE [None]
